FAERS Safety Report 10261711 (Version 1)
Quarter: 2014Q2

REPORT INFORMATION
  Report Type: Spontaneous
  Country: US (occurrence: None)
  Receive Date: 20140624
  Receipt Date: 20140624
  Transmission Date: 20141212
  Serious: Yes (Other)
  Sender: FDA-Public Use
  Company Number: None

PATIENT
  Age: 49 Year
  Sex: Male
  Weight: 79.83 kg

DRUGS (2)
  1. QUETIAPINE [Suspect]
     Indication: DEPRESSION
     Dosage: 400MG, 1 1/2 TABS  Q HS  ORAL
     Route: 048
     Dates: start: 201205, end: 20120711
  2. QUETIAPINE [Suspect]
     Indication: POST-TRAUMATIC STRESS DISORDER
     Dosage: 400MG, 1 1/2 TABS  Q HS  ORAL
     Route: 048
     Dates: start: 201205, end: 20120711

REACTIONS (5)
  - Anxiety [None]
  - Abnormal dreams [None]
  - Somnolence [None]
  - Poor quality sleep [None]
  - Ill-defined disorder [None]
